FAERS Safety Report 4878407-8 (Version None)
Quarter: 2005Q4

REPORT INFORMATION
  Report Type: 
  Country: None (occurrence: None)
  Receive Date: 20051212
  Receipt Date: 20050309
  Transmission Date: 20060501
  Serious: Yes (Other)
  Sender: FDA-Public Use
  Company Number: SUSI-2005-00178

PATIENT
  Age: 9 Year
  Sex: Male
  Weight: 45.4 kg

DRUGS (2)
  1. ADDERALL XR (DEXTROAMPHETAMINE SACCHARATE, AMPHETAMINE SULFATE, AMPHET [Suspect]
     Indication: ATTENTION DEFICIT/HYPERACTIVITY DISORDER
     Dosage: 40 MG, 1X/DAY:QD
     Dates: start: 20030101
  2. CLONIDINE [Concomitant]

REACTIONS (3)
  - ABNORMAL BEHAVIOUR [None]
  - MOOD SWINGS [None]
  - PSYCHOTIC DISORDER [None]
